FAERS Safety Report 5057360-0 (Version None)
Quarter: 2006Q3

REPORT INFORMATION
  Report Type: 
  Country: None (occurrence: None)
  Receive Date: 20060721
  Receipt Date: 20050829
  Transmission Date: 20061208
  Serious: No
  Sender: FDA-Public Use
  Company Number: US-GLAXOSMITHKLINE-A0572190A

PATIENT
  Age: 75 Year
  Sex: Female

DRUGS (9)
  1. AVANDIA [Suspect]
     Route: 048
     Dates: start: 20050601
  2. SYNTHROID [Concomitant]
  3. GLUCOTROL [Concomitant]
  4. LIPITOR [Concomitant]
  5. NORVASC [Concomitant]
  6. GLUCOPHAGE [Concomitant]
  7. PREVACID [Concomitant]
  8. SINEQUAN [Concomitant]
  9. DIOVAN [Concomitant]

REACTIONS (1)
  - BLOOD GLUCOSE INCREASED [None]
